FAERS Safety Report 15896405 (Version 2)
Quarter: 2019Q1

REPORT INFORMATION
  Report Type: Report from Study
  Country: RO (occurrence: RO)
  Receive Date: 20190131
  Receipt Date: 20190313
  Transmission Date: 20190417
  Serious: Yes (Other)
  Sender: FDA-Public Use
  Company Number: RO-GILEAD-2019-0388064

PATIENT
  Age: 79 Year
  Sex: Female

DRUGS (5)
  1. EGILOK [Concomitant]
     Active Substance: METOPROLOL TARTRATE
  2. PRESTARIUM [PERINDOPRIL] [Concomitant]
  3. LEDIPASVIR/SOFOSBUVIR [Suspect]
     Active Substance: LEDIPASVIR\SOFOSBUVIR
     Indication: HEPATITIS C
     Dosage: 1 DF, QD
     Route: 048
     Dates: start: 20181212, end: 20190305
  4. LEDIPASVIR/SOFOSBUVIR [Suspect]
     Active Substance: LEDIPASVIR\SOFOSBUVIR
     Indication: HEPATIC CIRRHOSIS
  5. IMOVANE [Concomitant]
     Active Substance: ZOPICLONE

REACTIONS (11)
  - Transaminases increased [Not Recovered/Not Resolved]
  - Cheilitis [Recovered/Resolved]
  - Feeling cold [Recovering/Resolving]
  - Ankle fracture [Not Recovered/Not Resolved]
  - Dizziness [Not Recovered/Not Resolved]
  - Chills [Recovered/Resolved]
  - Nasopharyngitis [Recovering/Resolving]
  - Insomnia [Not Recovered/Not Resolved]
  - Hypertensive crisis [Recovered/Resolved]
  - Weight decreased [Not Recovered/Not Resolved]
  - Haemoglobin decreased [Not Recovered/Not Resolved]

NARRATIVE: CASE EVENT DATE: 20181212
